FAERS Safety Report 7504132-0 (Version None)
Quarter: 2011Q2

REPORT INFORMATION
  Report Type: 
  Country: None (occurrence: None)
  Receive Date: 20110401
  Receipt Date: 20110210
  Transmission Date: 20111010
  Serious: No
  Sender: FDA-Public Use
  Company Number: US-004771

PATIENT
  Sex: Male
  Weight: 111.1313 kg

DRUGS (7)
  1. FIRMAGON [Suspect]
     Indication: PROSTATE CANCER
     Dosage: 240 MG 1X SUBCUTANEOUS, 80 MG 1X SUBCUTANEOUS
     Route: 058
     Dates: start: 20100920, end: 20100920
  2. FIRMAGON [Suspect]
     Indication: PROSTATE CANCER
     Dosage: 240 MG 1X SUBCUTANEOUS, 80 MG 1X SUBCUTANEOUS
     Route: 058
     Dates: start: 20100823, end: 20100823
  3. ASPIRIN [Concomitant]
  4. GLUCOPHAGE [Concomitant]
  5. VERAPAMIL [Concomitant]
  6. ELIGARD [Concomitant]
  7. LISINOPRIL [Concomitant]

REACTIONS (1)
  - PROSTATIC SPECIFIC ANTIGEN INCREASED [None]
